FAERS Safety Report 5378784-8 (Version None)
Quarter: 2007Q3

REPORT INFORMATION
  Report Type: 
  Country: None (occurrence: None)
  Receive Date: 20070705
  Receipt Date: 20070625
  Transmission Date: 20080115
  Serious: Yes (Hospitalization, Other)
  Sender: FDA-Public Use
  Company Number: CA-ELI_LILLY_AND_COMPANY-CA200704004218

PATIENT
  Age: 70 Year
  Sex: Female
  Weight: 47.619 kg

DRUGS (2)
  1. FORTEO [Suspect]
     Indication: OSTEOPOROSIS
     Dosage: 20 UG, DAILY (1/D)
     Route: 058
     Dates: start: 20060720, end: 20070326
  2. COUMADIN [Concomitant]
     Dates: start: 20061101, end: 20070301

REACTIONS (2)
  - CEREBROVASCULAR ACCIDENT [None]
  - EMBOLIC STROKE [None]
